FAERS Safety Report 6918244-3 (Version None)
Quarter: 2010Q3

REPORT INFORMATION
  Report Type: 
  Country: None (occurrence: None)
  Receive Date: 20100811
  Receipt Date: 20100809
  Transmission Date: 20110219
  Serious: Yes (Hospitalization, Other)
  Sender: FDA-Public Use
  Company Number: US-ASTRAZENECA-2006UW07774

PATIENT
  Age: 19330 Day
  Sex: Male
  Weight: 74.4 kg

DRUGS (32)
  1. SEROQUEL [Suspect]
     Indication: BIPOLAR DISORDER
     Dosage: 25-100 MG
     Route: 048
     Dates: start: 19990819, end: 20010719
  2. ABILIFY [Concomitant]
     Route: 048
     Dates: start: 20040623, end: 20070101
  3. ZOLOFT [Concomitant]
     Indication: DEPRESSION
     Dosage: 25-200 MG
     Route: 048
     Dates: start: 20031106
  4. ZOLOFT [Concomitant]
     Dates: start: 20060101, end: 20070101
  5. LITHIUM [Concomitant]
     Indication: PERSONALITY DISORDER
     Dosage: 150-450MG
     Route: 048
     Dates: start: 19980730
  6. LITHIUM [Concomitant]
     Dosage: 300-450 MG
     Dates: start: 19990101, end: 20070101
  7. ZYPREXA [Concomitant]
     Dosage: 10 MG AT MORNING AND 20 MG AT NIGHT
     Route: 048
     Dates: start: 20020814
  8. ZYPREXA [Concomitant]
     Dosage: 10 MG TO 30 MG
     Route: 048
     Dates: start: 20021001, end: 20040526
  9. KLONOPIN [Concomitant]
     Indication: ANXIETY
     Dosage: 0.25-0.5 MG, TWO TIMES A DAY
     Dates: start: 20020814
  10. DIOVAN [Concomitant]
     Indication: ANXIETY
     Route: 048
     Dates: start: 20050720
  11. OXYCODONE [Concomitant]
     Dosage: STRENGTH-20 MG/20 ML
     Route: 048
     Dates: start: 20050329
  12. LORTAB [Concomitant]
     Dosage: 7.5/500 MG
     Route: 048
     Dates: start: 20041108
  13. LIPITOR [Concomitant]
     Indication: HYPERLIPIDAEMIA
     Dates: start: 20041108
  14. GLUCOTROL XL [Concomitant]
     Indication: TYPE 2 DIABETES MELLITUS
     Dates: start: 20030409
  15. REQUIP [Concomitant]
     Indication: PARKINSONISM
     Route: 048
     Dates: start: 20041108
  16. REQUIP [Concomitant]
     Indication: RESTLESS LEGS SYNDROME
     Route: 048
     Dates: start: 20041108
  17. HYDROCODONE [Concomitant]
     Dosage: 0.5-7.5 MG
     Route: 048
     Dates: start: 20041108
  18. LYRICA [Concomitant]
     Dates: start: 20051108
  19. NEXIUM [Concomitant]
     Indication: GASTROOESOPHAGEAL REFLUX DISEASE
     Route: 048
     Dates: start: 20050811
  20. NEXIUM [Concomitant]
     Indication: PEPTIC ULCER
     Route: 048
     Dates: start: 20050811
  21. NEXIUM [Concomitant]
     Indication: PEPTIC ULCER HAEMORRHAGE
     Route: 048
     Dates: start: 20050811
  22. TOPROL-XL [Concomitant]
     Indication: ANXIETY
     Dosage: 25-50MG, DAILY
     Route: 048
     Dates: start: 20020814
  23. TRILEPTAL [Concomitant]
     Indication: NEUROPATHY PERIPHERAL
     Route: 048
     Dates: start: 20050707
  24. PREVACID [Concomitant]
     Route: 048
     Dates: start: 20000126, end: 20080103
  25. PAXIL [Concomitant]
     Route: 048
     Dates: start: 20020814, end: 20031106
  26. ESKALITH [Concomitant]
     Route: 048
     Dates: start: 20020814
  27. NEURONTIN [Concomitant]
     Route: 048
     Dates: start: 20000712
  28. CARBIDOPA AND LEVODOPA [Concomitant]
     Dosage: 25/100MG
     Route: 048
     Dates: start: 20041108
  29. CELEXA [Concomitant]
     Dosage: 20-40 MG
     Route: 048
     Dates: start: 19990917
  30. CELEBREX [Concomitant]
     Route: 048
     Dates: start: 20060126
  31. RISPERDAL [Concomitant]
     Dates: start: 19990101, end: 20010101
  32. SYMBYAX [Concomitant]
     Dosage: 10 MG TO 30 MG
     Dates: start: 20021001, end: 20040526

REACTIONS (20)
  - ARTHRITIS [None]
  - BLADDER DISCOMFORT [None]
  - CARDIAC DISORDER [None]
  - COELIAC DISEASE [None]
  - DIABETES MELLITUS [None]
  - DIABETIC COMPLICATION [None]
  - DIABETIC NEUROPATHY [None]
  - DIZZINESS [None]
  - DYSPNOEA [None]
  - GASTROINTESTINAL DISORDER [None]
  - HYPERHIDROSIS [None]
  - INFECTION [None]
  - LETHARGY [None]
  - NEUROPATHY PERIPHERAL [None]
  - PYREXIA [None]
  - SPINAL OSTEOARTHRITIS [None]
  - UPPER RESPIRATORY TRACT INFECTION [None]
  - URINARY TRACT INFECTION [None]
  - VOMITING [None]
  - WEIGHT DECREASED [None]
